FAERS Safety Report 23024376 (Version 1)
Quarter: 2023Q4

REPORT INFORMATION
  Report Type: Spontaneous
  Country: GB (occurrence: GB)
  Receive Date: 20231004
  Receipt Date: 20231004
  Transmission Date: 20240110
  Serious: Yes (Hospitalization, Other)
  Sender: FDA-Public Use
  Company Number: GB-MHRA-ADR 28200210

PATIENT
  Age: 73 Year
  Sex: Male

DRUGS (9)
  1. CLOPIDOGREL [Suspect]
     Active Substance: CLOPIDOGREL BISULFATE
     Indication: Product used for unknown indication
     Dosage: 75 MILLIGRAM, ONCE A DAY (HELD TEMPORARILY THEN RESUMED)
     Route: 065
  2. DOSULEPIN HYDROCHLORIDE [Concomitant]
     Active Substance: DOTHIEPIN HYDROCHLORIDE
     Indication: Product used for unknown indication
     Dosage: 75 MILLIGRAM, ONCE A DAY (AT NIGHT)
     Route: 065
  3. ATORVASTATIN [Concomitant]
     Active Substance: ATORVASTATIN
     Indication: Product used for unknown indication
     Dosage: 80 MILLIGRAM, ONCE A DAY (AT NIGHT)
     Route: 065
  4. DOSULEPIN HYDROCHLORIDE [Concomitant]
     Active Substance: DOTHIEPIN HYDROCHLORIDE
     Indication: Product used for unknown indication
     Dosage: 25 MILLIGRAM, ONCE A DAY (AT NIGHT)
     Route: 065
  5. LACTULOSE [Concomitant]
     Active Substance: LACTULOSE
     Indication: Product used for unknown indication
     Dosage: 15 MILLILITER, ONCE A DAY (3.1-3.7G/5MLAT NIGHT)
     Route: 065
  6. QUININE SULFATE [Concomitant]
     Active Substance: QUININE SULFATE
     Indication: Product used for unknown indication
     Dosage: 200 MILLIGRAM, ONCE A DAY (AT NIGHT)
     Route: 065
  7. FERROUS SULFATE [Concomitant]
     Active Substance: FERROUS SULFATE
     Indication: Product used for unknown indication
     Dosage: 200 MILLIGRAM, 3 TIMES A DAY
     Route: 065
  8. THIAMINE [Concomitant]
     Active Substance: THIAMINE
     Indication: Product used for unknown indication
     Dosage: 100 MILLIGRAM, 3 TIMES A DAY
     Route: 065
  9. LANSOPRAZOLE [Concomitant]
     Active Substance: LANSOPRAZOLE
     Indication: Product used for unknown indication
     Dosage: 60 MILLIGRAM, TWO TIMES A DAY
     Route: 065

REACTIONS (1)
  - Haematemesis [Unknown]

NARRATIVE: CASE EVENT DATE: 20230120
